FAERS Safety Report 6552671-1 (Version None)
Quarter: 2010Q1

REPORT INFORMATION
  Report Type: 
  Country: None (occurrence: None)
  Receive Date: 20100126
  Receipt Date: 20100119
  Transmission Date: 20100710
  Serious: Yes (Hospitalization)
  Sender: FDA-Public Use
  Company Number: B0616616A

PATIENT
  Sex: Male

DRUGS (5)
  1. VALTREX [Suspect]
     Indication: FACIAL PALSY
     Dosage: 500MG TWICE PER DAY
     Route: 048
     Dates: start: 20091210, end: 20091213
  2. ALFAROL [Concomitant]
     Dosage: 75MG PER DAY
     Route: 048
     Dates: start: 20090511
  3. URSO 250 [Concomitant]
     Indication: LIVER DISORDER
     Dosage: 600MG PER DAY
     Route: 048
     Dates: start: 20090511
  4. CALTAN [Concomitant]
     Dosage: 3000MG PER DAY
     Route: 048
     Dates: start: 20090511
  5. OMEPRAL [Concomitant]

REACTIONS (4)
  - DYSARTHRIA [None]
  - ENCEPHALOPATHY [None]
  - GAIT DISTURBANCE [None]
  - OVERDOSE [None]
